FAERS Safety Report 5481475-6 (Version None)
Quarter: 2007Q4

REPORT INFORMATION
  Report Type: 
  Country: None (occurrence: None)
  Receive Date: 20071010
  Receipt Date: 20071004
  Transmission Date: 20080405
  Serious: Yes (Life-Threatening, Hospitalization)
  Sender: FDA-Public Use
  Company Number: NL-BAYER-200714967GDS

PATIENT
  Age: 63 Year
  Sex: Male

DRUGS (2)
  1. NEXAVAR [Suspect]
     Indication: DRUG USE FOR UNKNOWN INDICATION
     Route: 048
     Dates: start: 20070807, end: 20070827
  2. DEXAMETHASONE 0.5MG TAB [Concomitant]
     Indication: DRUG USE FOR UNKNOWN INDICATION
     Route: 065

REACTIONS (4)
  - ASTHENIA [None]
  - DIVERTICULAR PERFORATION [None]
  - FATIGUE [None]
  - GASTROINTESTINAL INFLAMMATION [None]
